FAERS Safety Report 20964719 (Version 1)
Quarter: 2022Q2

REPORT INFORMATION
  Report Type: Report from Study
  Country: US (occurrence: US)
  Receive Date: 20220615
  Receipt Date: 20220615
  Transmission Date: 20220721
  Serious: Yes (Hospitalization)
  Sender: FDA-Public Use
  Company Number: US-ABBVIE-22K-163-4433959-00

PATIENT
  Age: 64 Year
  Sex: Female

DRUGS (1)
  1. RINVOQ [Suspect]
     Active Substance: UPADACITINIB
     Indication: Rheumatoid arthritis
     Route: 048

REACTIONS (5)
  - COVID-19 [Unknown]
  - Intestinal resection [Unknown]
  - Congenital syphilitic osteochondritis [Unknown]
  - Uveitis [Unknown]
  - Vasculitis [Unknown]

NARRATIVE: CASE EVENT DATE: 20211201
